FAERS Safety Report 21416403 (Version 1)
Quarter: 2022Q4

REPORT INFORMATION
  Report Type: Spontaneous
  Country: CA (occurrence: CA)
  Receive Date: 20221006
  Receipt Date: 20221006
  Transmission Date: 20230113
  Serious: Yes (Death)
  Sender: FDA-Public Use
  Company Number: CA-TEVA-2022-CA-2078604

PATIENT
  Age: 69 Year
  Sex: Male

DRUGS (4)
  1. ENALAPRIL [Suspect]
     Active Substance: ENALAPRIL
     Indication: Product used for unknown indication
     Route: 065
  2. ACETAMINOPHEN [Concomitant]
     Active Substance: ACETAMINOPHEN
     Indication: Product used for unknown indication
  3. DIPHENHYDRAMINE [Concomitant]
     Active Substance: DIPHENHYDRAMINE
     Indication: Product used for unknown indication
  4. ZOPICLONE [Concomitant]
     Active Substance: ZOPICLONE
     Indication: Product used for unknown indication

REACTIONS (10)
  - Accidental death [Fatal]
  - Adverse drug reaction [Fatal]
  - Angioedema [Fatal]
  - Angioedema [Fatal]
  - Cardio-respiratory arrest [Fatal]
  - Cyanosis [Fatal]
  - Dyspnoea [Fatal]
  - Laryngeal oedema [Fatal]
  - Obstructive airways disorder [Fatal]
  - Sensation of foreign body [Fatal]
